FAERS Safety Report 8276455-1 (Version None)
Quarter: 2012Q2

REPORT INFORMATION
  Report Type: 
  Country: None (occurrence: None)
  Receive Date: 20120412
  Receipt Date: 20120409
  Transmission Date: 20120825
  Serious: No
  Sender: FDA-Public Use
  Company Number: US-PFIZER INC-2012072478

PATIENT
  Sex: Male
  Weight: 81.633 kg

DRUGS (2)
  1. ZOLOFT [Suspect]
     Dosage: 200 MG, 1X/DAY
     Dates: start: 20120101
  2. ZOLOFT [Suspect]
     Indication: DEPRESSION
     Dosage: 100 MG, 1X/DAY
     Dates: start: 20070101

REACTIONS (1)
  - LIVER DISORDER [None]
